FAERS Safety Report 7508591-9 (Version None)
Quarter: 2011Q2

REPORT INFORMATION
  Report Type: 
  Country: None (occurrence: None)
  Receive Date: 20110527
  Receipt Date: 20100928
  Transmission Date: 20111010
  Serious: No
  Sender: FDA-Public Use
  Company Number: A0884886A

PATIENT
  Age: 40 Year
  Sex: Female
  Weight: 102 kg

DRUGS (1)
  1. FLOLAN [Suspect]
     Dosage: 15NGKM CONTINUOUS
     Route: 042
     Dates: start: 20100802, end: 20100901

REACTIONS (2)
  - RASH PRURITIC [None]
  - RASH PAPULAR [None]
